FAERS Safety Report 10523768 (Version 1)
Quarter: 2014Q4

REPORT INFORMATION
  Report Type: Spontaneous
  Country: US (occurrence: None)
  Receive Date: 20141014
  Receipt Date: 20141014
  Transmission Date: 20150528
  Serious: Yes (Hospitalization)
  Sender: FDA-Public Use
  Company Number: None

PATIENT
  Age: 80 Year
  Sex: Female

DRUGS (1)
  1. CAPECITABINE. [Suspect]
     Active Substance: CAPECITABINE
     Dosage: 1500 MG BID X14DYS OFF X7DYS PO
     Route: 048
     Dates: start: 20140822

REACTIONS (3)
  - Colostomy [None]
  - Unevaluable event [None]
  - Laxative supportive care [None]

NARRATIVE: CASE EVENT DATE: 20141011
